FAERS Safety Report 10137484 (Version 2)
Quarter: 2015Q1

REPORT INFORMATION
  Report Type: Other
  Country: US (occurrence: US)
  Receive Date: 20140429
  Receipt Date: 20150219
  Transmission Date: 20150720
  Serious: Yes (Death, Hospitalization, Other)
  Sender: FDA-Public Use
  Company Number: US-GSKPPD-2014GSK041127

PATIENT
  Age: 75 Year
  Sex: Male

DRUGS (7)
  1. AVANDIA [Suspect]
     Active Substance: ROSIGLITAZONE MALEATE
     Indication: DIABETES MELLITUS
     Dosage: AVANDIA WAS NOT LISTED AMONG THE PATIENTS RECORDS REVIEWED.
     Route: 048
  2. ZAROXOLYN [Concomitant]
     Active Substance: METOLAZONE
     Dosage: TREATMENT MEDICATION
     Route: 048
     Dates: start: 200401
  3. DEMADEX [Concomitant]
     Active Substance: TORSEMIDE
     Dosage: TREATMENT MEDICATION
     Route: 048
     Dates: start: 200401
  4. COUMADIN [Concomitant]
     Active Substance: WARFARIN SODIUM
     Dates: start: 200401
  5. COREG [Concomitant]
     Active Substance: CARVEDILOL
     Route: 048
  6. LESCOL [Concomitant]
     Active Substance: FLUVASTATIN SODIUM
     Route: 048
  7. BUMEX [Concomitant]
     Active Substance: BUMETANIDE
     Dates: start: 200401

REACTIONS (2)
  - Ischaemic cardiomyopathy [Fatal]
  - Cardiac failure congestive [Recovered/Resolved]

NARRATIVE: CASE EVENT DATE: 20040107
